FAERS Safety Report 7951264-9 (Version None)
Quarter: 2011Q4

REPORT INFORMATION
  Report Type: 
  Country: None (occurrence: None)
  Receive Date: 20111201
  Receipt Date: 20111123
  Transmission Date: 20120403
  Serious: Yes (Hospitalization)
  Sender: FDA-Public Use
  Company Number: CA-UCBSA-044043

PATIENT
  Age: 42 Year
  Sex: Female
  Weight: 59.55 kg

DRUGS (5)
  1. CIMZIA [Suspect]
     Route: 058
     Dates: start: 20110706, end: 20110101
  2. CIMZIA [Suspect]
     Indication: RHEUMATOID ARTHRITIS
     Route: 058
     Dates: start: 20110101
  3. IBUPROFEN (ADVIL) [Concomitant]
     Indication: RHEUMATOID ARTHRITIS
     Dosage: DOSE PER INTAKE: I-II; NO OF INTAKES: ONCE 4-6 HOURS
     Route: 048
     Dates: start: 20040101
  4. CIMZIA [Suspect]
     Route: 058
     Dates: start: 20100525, end: 20100622
  5. ACETAMINOPHEN [Concomitant]
     Indication: RHEUMATOID ARTHRITIS
     Dosage: DOSE PER INTAKE: I-II; NO OF INTAKES: ONCE 4-6 HOURS
     Route: 048
     Dates: start: 20040101

REACTIONS (7)
  - COUGH [None]
  - RESPIRATORY TRACT INFLAMMATION [None]
  - SWELLING FACE [None]
  - RAYNAUD'S PHENOMENON [None]
  - RHEUMATOID ARTHRITIS [None]
  - ARTHRALGIA [None]
  - JOINT SWELLING [None]
